FAERS Safety Report 6021754-7 (Version None)
Quarter: 2008Q4

REPORT INFORMATION
  Report Type: 
  Country: None (occurrence: None)
  Receive Date: 20081229
  Receipt Date: 20081219
  Transmission Date: 20090506
  Serious: Yes (Hospitalization, Other)
  Sender: FDA-Public Use
  Company Number: PHHY2008JP05812

PATIENT
  Sex: Female
  Weight: 37 kg

DRUGS (8)
  1. ZOMETA [Suspect]
     Indication: METASTASES TO BONE
     Dosage: 4MG/BODY EVERY 4 WEEKS 3 TIMES
     Route: 042
     Dates: start: 20061114, end: 20071204
  2. AREDIA [Suspect]
     Indication: METASTASES TO BONE
     Dosage: 90 MG/DAY
     Route: 042
     Dates: start: 20050712, end: 20061114
  3. AREDIA [Suspect]
     Dosage: 90 MG/BODY EVERY 4 WEEKS 11 TIMES
     Route: 042
  4. PACLITAXEL [Concomitant]
     Dosage: 70MG/BODY/WEEK
  5. TRASTUZUMAB [Concomitant]
     Dosage: 80MG/BODY/WEEK
  6. CAPECITABINE [Concomitant]
     Dosage: 1,800 MG/DAY
  7. NAVELBINE [Concomitant]
     Indication: BREAST CANCER
     Dosage: 30 MG, UNK
     Route: 042
     Dates: start: 20071009, end: 20080122
  8. HERCEPTIN [Concomitant]
     Indication: BREAST CANCER
     Dosage: 100 MG, UNK
     Route: 042
     Dates: start: 20030624

REACTIONS (20)
  - ABSCESS JAW [None]
  - BLOOD LACTATE DEHYDROGENASE INCREASED [None]
  - BLOOD SODIUM DECREASED [None]
  - BONE LESION [None]
  - BONE SWELLING [None]
  - C-REACTIVE PROTEIN INCREASED [None]
  - COMPRESSION FRACTURE [None]
  - DENTURE WEARER [None]
  - FACE OEDEMA [None]
  - HAEMATOCRIT DECREASED [None]
  - HAEMOGLOBIN DECREASED [None]
  - INCISIONAL DRAINAGE [None]
  - MALAISE [None]
  - METASTASES TO LIVER [None]
  - METASTASES TO LYMPH NODES [None]
  - OSTEONECROSIS [None]
  - PAIN IN JAW [None]
  - POST PROCEDURAL DISCHARGE [None]
  - PYREXIA [None]
  - WHITE BLOOD CELL COUNT INCREASED [None]
